FAERS Safety Report 5750438-5 (Version None)
Quarter: 2008Q2

REPORT INFORMATION
  Report Type: 
  Country: None (occurrence: None)
  Receive Date: 20080528
  Receipt Date: 20070710
  Transmission Date: 20081010
  Serious: No
  Sender: FDA-Public Use
  Company Number: US-KINGPHARMUSA00001-K200700881

PATIENT

DRUGS (3)
  1. AVINZA [Suspect]
     Indication: BACK PAIN
     Dosage: 90 MG, QD
     Route: 048
     Dates: start: 20061101
  2. SOMA [Concomitant]
     Dosage: 350 MG, QID
  3. RESTORIL  /00393701/ [Concomitant]
     Dosage: 15 MG, QHS

REACTIONS (1)
  - TOXICOLOGIC TEST ABNORMAL [None]
